FAERS Safety Report 22361584 (Version 1)
Quarter: 2023Q2

REPORT INFORMATION
  Report Type: Report from Study
  Country: US (occurrence: US)
  Receive Date: 20230524
  Receipt Date: 20230524
  Transmission Date: 20230722
  Serious: Yes (Other)
  Sender: FDA-Public Use
  Company Number: US-TAKEDA-2023TUS049871

PATIENT
  Age: 72 Year
  Sex: Male

DRUGS (1)
  1. VEDOLIZUMAB [Suspect]
     Active Substance: VEDOLIZUMAB
     Indication: Crohn^s disease
     Dosage: 300 MILLIGRAM
     Route: 042
     Dates: start: 20230321

REACTIONS (6)
  - Small intestinal resection [Unknown]
  - Haemophilia [Unknown]
  - Injury [Unknown]
  - Drug ineffective [Unknown]
  - Joint injury [Recovering/Resolving]
  - Memory impairment [Unknown]

NARRATIVE: CASE EVENT DATE: 20230515
